FAERS Safety Report 21806420 (Version 1)
Quarter: 2023Q1

REPORT INFORMATION
  Report Type: Spontaneous
  Country: US (occurrence: US)
  Receive Date: 20230102
  Receipt Date: 20230102
  Transmission Date: 20230417
  Serious: No
  Sender: FDA-Public Use
  Company Number: US-VIIV HEALTHCARE LIMITED-US2022AMR192261

PATIENT

DRUGS (2)
  1. RILPIVIRINE [Suspect]
     Active Substance: RILPIVIRINE
     Indication: Product used for unknown indication
     Dosage: UNK UNK, Z (400 MG/2 ML AND RILPIVIRINE- 600 MG/2 ML MONTHLY)
     Route: 065
  2. CABOTEGRAVIR [Suspect]
     Active Substance: CABOTEGRAVIR
     Indication: Product used for unknown indication
     Dosage: UNK UNK, Z (400 MG/2 ML AND RILPIVIRINE- 600 MG/2 ML MONTHLY)
     Route: 065

REACTIONS (1)
  - Injection site nodule [Unknown]
